FAERS Safety Report 8118730-7 (Version None)
Quarter: 2012Q1

REPORT INFORMATION
  Report Type: 
  Country: None (occurrence: None)
  Receive Date: 20120202
  Receipt Date: 20120130
  Transmission Date: 20120608
  Serious: Yes (Hospitalization)
  Sender: FDA-Public Use
  Company Number: 2012MA001302

PATIENT
  Sex: Female

DRUGS (2)
  1. MIRTAZAPINE [Suspect]
  2. MIRTAZAPINE [Suspect]

REACTIONS (1)
  - SOPOR [None]
